FAERS Safety Report 14780681 (Version 1)
Quarter: 2018Q2

REPORT INFORMATION
  Report Type: Spontaneous
  Country: US (occurrence: US)
  Receive Date: 20180419
  Receipt Date: 20180419
  Transmission Date: 20180711
  Serious: Yes (Other)
  Sender: FDA-Public Use
  Company Number: US-PFIZER INC-2018157311

PATIENT
  Age: 58 Year
  Sex: Female

DRUGS (1)
  1. XELJANZ XR [Suspect]
     Active Substance: TOFACITINIB CITRATE
     Dosage: 11 MG, UNK

REACTIONS (8)
  - Polyarthritis [Unknown]
  - Joint swelling [Unknown]
  - Musculoskeletal pain [Unknown]
  - Neck pain [Unknown]
  - C-reactive protein increased [Unknown]
  - Arthralgia [Unknown]
  - Drug ineffective [Unknown]
  - Dry mouth [Unknown]

NARRATIVE: CASE EVENT DATE: 2018
